FAERS Safety Report 23673408 (Version 1)
Quarter: 2024Q1

REPORT INFORMATION
  Report Type: Spontaneous
  Country: SE (occurrence: SE)
  Receive Date: 20240326
  Receipt Date: 20240326
  Transmission Date: 20240409
  Serious: Yes (Other)
  Sender: FDA-Public Use
  Company Number: None

PATIENT
  Age: 67 Year
  Sex: Male

DRUGS (2)
  1. CANDESARTAN [Suspect]
     Active Substance: CANDESARTAN
     Indication: Product used for unknown indication
     Dosage: 16 MILLIGRAM, QD
     Route: 065
     Dates: start: 20240207, end: 20240220
  2. CANDESARTAN [Suspect]
     Active Substance: CANDESARTAN
     Dosage: 8 MILLIGRAM, QD
     Route: 065
     Dates: start: 20230512, end: 20240206

REACTIONS (2)
  - Prerenal failure [Recovering/Resolving]
  - Prescribed overdose [Recovering/Resolving]

NARRATIVE: CASE EVENT DATE: 20240220
